FAERS Safety Report 11514364 (Version 1)
Quarter: 2015Q3

REPORT INFORMATION
  Report Type: Report from Study
  Country: GR (occurrence: GR)
  Receive Date: 20150916
  Receipt Date: 20150916
  Transmission Date: 20151125
  Serious: Yes (Hospitalization)
  Sender: FDA-Public Use
  Company Number: GR-ABBVIE-15P-066-1456273-00

PATIENT
  Age: 79 Year
  Sex: Female

DRUGS (2)
  1. DUODOPA [Suspect]
     Active Substance: CARBIDOPA\LEVODOPA
     Dosage: MORNING DOSE: 2.2 ML;CONTINUOUS RATE: 1.2 ML/H; EXTRA DOSE: 0.6 ML
     Route: 050
     Dates: start: 20150827
  2. DUODOPA [Suspect]
     Active Substance: CARBIDOPA\LEVODOPA
     Indication: PARKINSON^S DISEASE
     Dosage: MORNING: 5.1 ML;CONTINUOUS: 1 ML/H; EXTRA: 0.3 ML
     Route: 050
     Dates: start: 20120701, end: 20150825

REACTIONS (7)
  - Pelvic fracture [Recovering/Resolving]
  - Pain [Not Recovered/Not Resolved]
  - Pain [Not Recovered/Not Resolved]
  - Hyperkinesia [Unknown]
  - Fall [Unknown]
  - Injury [Not Recovered/Not Resolved]
  - Impaired healing [Recovering/Resolving]

NARRATIVE: CASE EVENT DATE: 201508
